FAERS Safety Report 19839630 (Version 1)
Quarter: 2021Q3

REPORT INFORMATION
  Report Type: Spontaneous
  Country: US (occurrence: US)
  Receive Date: 20210916
  Receipt Date: 20210916
  Transmission Date: 20211014
  Serious: No
  Sender: FDA-Public Use
  Company Number: US-BSC-202000239

PATIENT
  Age: 34 Year
  Sex: Female
  Weight: 46.7 kg

DRUGS (1)
  1. VARITHENA [Suspect]
     Active Substance: POLIDOCANOL
     Dosage: CANISTER SIZE: 18 ML
     Dates: start: 20201123, end: 20201123

REACTIONS (2)
  - Eye pain [Unknown]
  - Occupational exposure to product [Unknown]

NARRATIVE: CASE EVENT DATE: 20201123
